FAERS Safety Report 8988801 (Version 1)
Quarter: 2012Q4

REPORT INFORMATION
  Report Type: 
  Country: US (occurrence: US)
  Receive Date: 20121228
  Receipt Date: 20121228
  Transmission Date: 20130627
  Serious: Yes (Death)
  Sender: FDA-Public Use
  Company Number: PHEH2012US025444

PATIENT
  Age: 70 Year
  Sex: Male

DRUGS (11)
  1. AFINITOR [Suspect]
     Dosage: 7.5 mg, QD
     Route: 048
  2. FENTANYL [Concomitant]
     Dosage: 100 ug
  3. OXYCOD [Concomitant]
  4. COLACE [Concomitant]
     Dosage: 50 mg
     Route: 048
  5. SENOKOT                                 /UNK/ [Concomitant]
     Dosage: 8.6 mg
     Route: 048
  6. TAMSULOSIN [Concomitant]
     Dosage: 0.4 mg
     Route: 048
  7. LABETALOL [Concomitant]
     Dosage: 100 mg
     Route: 048
  8. AMLODIPINE [Concomitant]
     Dosage: 2.5 mg
     Route: 048
  9. SANDOSTATIN [Concomitant]
     Dosage: 100 ug
  10. ENSURE [Concomitant]
  11. OMPRAZOLE [Concomitant]
     Dosage: 20 mg

REACTIONS (1)
  - Death [Fatal]
